FAERS Safety Report 13490331 (Version 2)
Quarter: 2017Q2

REPORT INFORMATION
  Report Type: Spontaneous
  Country: PL (occurrence: PL)
  Receive Date: 20170427
  Receipt Date: 20170516
  Transmission Date: 20170830
  Serious: Yes (Other)
  Sender: FDA-Public Use
  Company Number: PL-AKORN PHARMACEUTICALS-2017AKN00489

PATIENT

DRUGS (4)
  1. U NSPECIFIED (DIFFERENT) OINTMENT [Concomitant]
     Indication: ACNE
     Route: 061
  2. ISOTRETINOIN [Suspect]
     Active Substance: ISOTRETINOIN
     Indication: ACNE
     Dosage: ^10 MG AND 20 MG AND 30 MG AND 40 MG^ SINGLE MORNING DOSE
     Route: 048
     Dates: start: 201201, end: 201608
  3. U NSPECIFIED (DIFFERENT) GELS [Concomitant]
     Indication: ACNE
     Route: 061
  4. U NSPECIFIED (DIFFERENT) CREAM [Concomitant]
     Indication: ACNE
     Route: 061

REACTIONS (1)
  - Mood altered [Recovered/Resolved]
